FAERS Safety Report 10550679 (Version 1)
Quarter: 2014Q4

REPORT INFORMATION
  Report Type: Spontaneous
  Country: US (occurrence: US)
  Receive Date: 20141029
  Receipt Date: 20141029
  Transmission Date: 20150529
  Serious: Yes (Hospitalization)
  Sender: FDA-Public Use
  Company Number: US-UNITED THERAPEUTICS-UNT-2014-009776

PATIENT
  Sex: Male

DRUGS (1)
  1. REMODULIN [Suspect]
     Active Substance: TREPROSTINIL
     Indication: PRODUCT USED FOR UNKNOWN INDICATION
     Dosage: 0.0298 ?G/KG, CONTINUING
     Route: 041
     Dates: start: 20140505

REACTIONS (2)
  - Pyrexia [Unknown]
  - Sepsis [Unknown]

NARRATIVE: CASE EVENT DATE: 20141010
